FAERS Safety Report 10151626 (Version 1)
Quarter: 2014Q2

REPORT INFORMATION
  Report Type: Spontaneous
  Country: US (occurrence: US)
  Receive Date: 20140505
  Receipt Date: 20140505
  Transmission Date: 20141212
  Serious: Yes (Other)
  Sender: FDA-Public Use
  Company Number: 2014SP002235

PATIENT
  Age: 43 Year
  Sex: Female
  Weight: 87 kg

DRUGS (34)
  1. CYTARABINE [Suspect]
     Indication: MYELODYSPLASTIC SYNDROME
     Route: 042
     Dates: start: 20140411, end: 20140411
  2. CYTARABINE [Suspect]
     Indication: MYELODYSPLASTIC SYNDROME
     Dates: start: 20140412
  3. DAUNORUBICIN [Suspect]
     Indication: MYELODYSPLASTIC SYNDROME
     Route: 040
     Dates: start: 20140411
  4. DAUNORUBICIN [Suspect]
     Indication: MYELODYSPLASTIC SYNDROME
     Dates: start: 20140412
  5. ATENOLOL [Concomitant]
     Indication: HYPERTENSION
  6. PAXIL [Concomitant]
     Indication: DEPRESSION
  7. LORAZEPAM [Concomitant]
     Indication: ANXIETY
  8. IBUPROFEN AND DIPHENHYDRAMINE HYDROCHLORIDE [Concomitant]
     Indication: PAIN
     Dates: end: 20140404
  9. AMITRIPTYLINE [Concomitant]
     Indication: INSOMNIA
     Dates: end: 20140404
  10. OXYCODONE [Concomitant]
     Indication: PAIN
  11. OXYCODONE [Concomitant]
     Indication: PROPHYLAXIS
  12. DOXYCYCLINE [Concomitant]
     Indication: ABSCESS
     Dates: end: 20140404
  13. DOXYCYCLINE [Concomitant]
     Indication: PROPHYLAXIS
     Dates: end: 20140404
  14. BACLOFEN [Concomitant]
     Indication: HEADACHE
     Dates: end: 20140404
  15. BACLOFEN [Concomitant]
     Indication: BACK PAIN
     Dates: end: 20140404
  16. BACLOFEN [Concomitant]
     Indication: NECK PAIN
     Dates: end: 20140404
  17. SIMVASTATIN [Concomitant]
     Indication: HYPERCHOLESTEROLAEMIA
     Dates: end: 20140404
  18. LISINOPRIL [Concomitant]
     Indication: HYPERTENSION
     Dates: end: 20140404
  19. ACYCLOVIR [Concomitant]
     Indication: PROPHYLAXIS
     Dates: start: 20140404
  20. ALTEPLASE [Concomitant]
     Indication: PROPHYLAXIS
     Dates: start: 20140408, end: 20140409
  21. AZTREONAM [Concomitant]
     Indication: FEBRILE NEUTROPENIA
     Dates: start: 20140404
  22. AZTREONAM [Concomitant]
     Indication: PROPHYLAXIS
     Dates: start: 20140404
  23. DIPHENHYDRAMINE HCL + IBUPROFEN [Concomitant]
     Indication: HEADACHE
     Dates: start: 20140403
  24. DOCUSATE [Concomitant]
     Indication: CONSTIPATION
     Dates: start: 20140404, end: 20140406
  25. LEUPRORELIN [Concomitant]
     Indication: MENORRHAGIA
     Dates: start: 20140404, end: 20140405
  26. MEDROXYPROGESTERONE [Concomitant]
     Indication: MENORRHAGIA
     Dates: start: 20140404
  27. METOCLOPRAMIDE [Concomitant]
     Indication: HEADACHE
     Dates: start: 20140403, end: 20140404
  28. POTASSIUM CHLORIDE [Concomitant]
     Indication: HYPOKALAEMIA
     Dates: start: 20140410, end: 20140411
  29. SENNA LEAF [Concomitant]
     Indication: CONSTIPATION
     Dates: start: 20140404, end: 20140406
  30. VANCOMYCIN [Concomitant]
     Indication: FEBRILE NEUTROPENIA
     Dates: start: 20140404
  31. ACETAMINOPHEN [Concomitant]
     Indication: PAIN MANAGEMENT
     Dates: start: 20140404
  32. ONDANSETRON [Concomitant]
     Indication: NAUSEA
     Dates: start: 20140410
  33. TOBRAMYCIN [Concomitant]
  34. TOBRAMYCIN [Concomitant]

REACTIONS (4)
  - Infusion site reaction [Recovered/Resolved]
  - Chills [Recovered/Resolved]
  - Skin discolouration [Recovered/Resolved]
  - Cyanosis [Recovered/Resolved]
